FAERS Safety Report 4425131-1 (Version None)
Quarter: 2004Q3

REPORT INFORMATION
  Report Type: 
  Country: None (occurrence: None)
  Receive Date: 20040811
  Receipt Date: 20040811
  Transmission Date: 20050211
  Serious: No
  Sender: FDA-Public Use
  Company Number: None

PATIENT
  Age: 49 Year
  Sex: Male
  Weight: 91 kg

DRUGS (2)
  1. CISPLATIN [Suspect]
     Indication: CARCINOMA
     Dosage: 97 MG Q MONTH IV
     Route: 042
     Dates: start: 20040204, end: 20040508
  2. FLUOROURACIL [Suspect]
     Dosage: 6208 MG OVER 96 HO IV
     Route: 042
     Dates: start: 20040204, end: 20040507

REACTIONS (2)
  - CONSTIPATION [None]
  - NEUROPATHY PERIPHERAL [None]
